FAERS Safety Report 6385288-2 (Version None)
Quarter: 2009Q4

REPORT INFORMATION
  Report Type: 
  Country: None (occurrence: None)
  Receive Date: 20091002
  Receipt Date: 20080807
  Transmission Date: 20100525
  Serious: No
  Sender: FDA-Public Use
  Company Number: US-ASTRAZENECA-2008UW16265

PATIENT
  Age: 69 Year
  Sex: Female
  Weight: 108 kg

DRUGS (8)
  1. ARIMIDEX [Suspect]
     Indication: BREAST CANCER FEMALE
     Route: 048
     Dates: start: 20060101
  2. PLENDIL [Concomitant]
     Route: 048
  3. ATENOLOL [Concomitant]
  4. COZAAR [Concomitant]
  5. HYDROCHLOROTHIAZIDE [Concomitant]
  6. PROTONIX [Concomitant]
  7. VITAMIN C AND E [Concomitant]
  8. TYLENOL (CAPLET) [Concomitant]
     Dosage: AS NEEDED

REACTIONS (11)
  - ALOPECIA [None]
  - APATHY [None]
  - ARTHRALGIA [None]
  - ASTHENIA [None]
  - BACK PAIN [None]
  - DEPRESSION [None]
  - HOT FLUSH [None]
  - INSOMNIA [None]
  - JOINT SWELLING [None]
  - PAIN [None]
  - WEIGHT INCREASED [None]
